FAERS Safety Report 7328192-5 (Version None)
Quarter: 2011Q1

REPORT INFORMATION
  Report Type: 
  Country: None (occurrence: None)
  Receive Date: 20110303
  Receipt Date: 20110303
  Transmission Date: 20110831
  Serious: Yes (Hospitalization)
  Sender: FDA-Public Use
  Company Number: PHHO2007CZ19116

PATIENT
  Sex: Female
  Weight: 50 kg

DRUGS (7)
  1. PLACEBO [Suspect]
     Indication: CARCINOID TUMOUR
     Dosage: PLACEBO
     Route: 048
     Dates: start: 20070504
  2. DHC [Concomitant]
  3. FUROSEMID [Concomitant]
  4. SANDOSTATIN LAR [Suspect]
     Indication: CARCINOID TUMOUR
     Dosage: DOUBLE BLIND
     Route: 048
     Dates: start: 20070504
  5. VASOCARDIN [Concomitant]
  6. ENAP [Concomitant]
  7. AFONILUM [Concomitant]

REACTIONS (7)
  - NEOPLASM MALIGNANT [None]
  - WEIGHT DECREASED [None]
  - DEHYDRATION [None]
  - GASTROINTESTINAL TUBE INSERTION [None]
  - CARCINOID TUMOUR [None]
  - MALNUTRITION [None]
  - DECREASED APPETITE [None]
